FAERS Safety Report 14402339 (Version 1)
Quarter: 2018Q1

REPORT INFORMATION
  Report Type: Spontaneous
  Country: SA (occurrence: SA)
  Receive Date: 20180116
  Receipt Date: 20180116
  Transmission Date: 20180509
  Serious: Yes (Life-Threatening, Hospitalization, Disabling)
  Sender: FDA-Public Use
  Company Number: None

PATIENT
  Age: 64 Year
  Sex: Female

DRUGS (1)
  1. PACLITAXEL. [Suspect]
     Active Substance: PACLITAXEL
     Indication: OVARIAN CANCER
     Dates: start: 20170131, end: 20170501

REACTIONS (5)
  - Speech disorder [None]
  - Asthenia [None]
  - Dysphagia [None]
  - Loss of personal independence in daily activities [None]
  - Myositis [None]

NARRATIVE: CASE EVENT DATE: 20170131
